FAERS Safety Report 10084745 (Version 3)
Quarter: 2014Q2

REPORT INFORMATION
  Report Type: Spontaneous
  Country: JP (occurrence: JP)
  Receive Date: 20140417
  Receipt Date: 20140529
  Transmission Date: 20141212
  Serious: Yes (Life-Threatening, Hospitalization)
  Sender: FDA-Public Use
  Company Number: JP-GLAXOSMITHKLINE-B0986697A

PATIENT
  Age: 52 Year
  Sex: Male

DRUGS (6)
  1. OMEGA-3-ACID ETHYL ESTERS [Suspect]
     Indication: HYPERLIPIDAEMIA
     Dosage: 2000MG PER DAY
     Route: 048
     Dates: start: 20140213, end: 20140304
  2. ACTOS [Suspect]
     Indication: TYPE 2 DIABETES MELLITUS
     Dosage: 15MG PER DAY
     Route: 048
     Dates: start: 20140213, end: 20140404
  3. LANTUS [Concomitant]
     Route: 065
     Dates: start: 20140228, end: 20140304
  4. MICAMLO [Concomitant]
     Route: 065
     Dates: start: 20140213, end: 20140227
  5. LOXONIN [Concomitant]
     Dates: start: 20140213, end: 20140227
  6. MUCOSTA [Concomitant]
     Route: 065
     Dates: start: 20140213, end: 20140227

REACTIONS (7)
  - Renal impairment [Recovering/Resolving]
  - Platelet count decreased [Recovering/Resolving]
  - Hepatic function abnormal [Unknown]
  - Jaundice [Unknown]
  - Pyrexia [Unknown]
  - Thirst [Unknown]
  - Headache [Unknown]
